FAERS Safety Report 16772639 (Version 1)
Quarter: 2019Q3

REPORT INFORMATION
  Report Type: Spontaneous
  Country: CA (occurrence: CA)
  Receive Date: 20190904
  Receipt Date: 20190904
  Transmission Date: 20191005
  Serious: Yes (Other)
  Sender: FDA-Public Use
  Company Number: CA-PFIZER INC-2019379198

PATIENT
  Age: 42 Year
  Sex: Female

DRUGS (12)
  1. ERGOCALCIFEROL. [Concomitant]
     Active Substance: ERGOCALCIFEROL
     Dosage: UNK
  2. THIAMINE HYDROCHLORIDE. [Concomitant]
     Active Substance: THIAMINE HYDROCHLORIDE
     Dosage: UNK
  3. JINARC [Suspect]
     Active Substance: TOLVAPTAN
     Dosage: 30 MG IN THE EVENING
     Route: 048
     Dates: start: 20171111
  4. FLUCONAZOLE. [Suspect]
     Active Substance: FLUCONAZOLE
     Indication: VULVOVAGINAL MYCOTIC INFECTION
     Dosage: UNK
  5. JINARC [Suspect]
     Active Substance: TOLVAPTAN
     Dosage: 15 MG IN THE EVENING
     Route: 048
     Dates: start: 20161111, end: 20171110
  6. JINARC [Suspect]
     Active Substance: TOLVAPTAN
     Dosage: 60 MG IN THE MORNING
     Route: 048
     Dates: start: 20171111
  7. NICOTINAMIDE [Concomitant]
     Active Substance: NIACINAMIDE
     Dosage: UNK
  8. RIBOFLAVIN [Concomitant]
     Active Substance: RIBOFLAVIN
     Dosage: UNK
  9. JINARC [Suspect]
     Active Substance: TOLVAPTAN
     Indication: CONGENITAL CYSTIC KIDNEY DISEASE
     Dosage: 45 MG IN THE MORNING
     Route: 048
     Dates: start: 20161111, end: 20171110
  10. RETINOL [Concomitant]
     Active Substance: RETINOL
     Dosage: UNK
  11. VITAMIN B12 [Suspect]
     Active Substance: CYANOCOBALAMIN
     Dosage: UNK
  12. ASCORBIC ACID. [Concomitant]
     Active Substance: ASCORBIC ACID
     Dosage: UNK

REACTIONS (8)
  - Weight decreased [Not Recovered/Not Resolved]
  - Product dose omission [Unknown]
  - Urinary incontinence [Unknown]
  - Influenza like illness [Unknown]
  - Feeling abnormal [Unknown]
  - Lower respiratory tract infection [Unknown]
  - Drug ineffective [Unknown]
  - Therapeutic response unexpected [Unknown]

NARRATIVE: CASE EVENT DATE: 201611
